FAERS Safety Report 12168492 (Version 3)
Quarter: 2016Q1

REPORT INFORMATION
  Report Type: Report from Study
  Country: GB (occurrence: GB)
  Receive Date: 20160310
  Receipt Date: 20160329
  Transmission Date: 20160526
  Serious: Yes (Other)
  Sender: FDA-Public Use
  Company Number: GB-BIOGEN-2015BI058776

PATIENT
  Age: 67 Year
  Sex: Female
  Weight: 73 kg

DRUGS (3)
  1. TIZANIDINE. [Concomitant]
     Active Substance: TIZANIDINE
     Indication: MUSCLE SPASMS
     Route: 048
     Dates: start: 20131025
  2. NYSTAN [Concomitant]
     Active Substance: NYSTATIN
     Indication: ORAL CANDIDIASIS
     Route: 048
     Dates: start: 20150416, end: 20150423
  3. PLACEBO [Suspect]
     Active Substance: UNSPECIFIED INGREDIENT
     Indication: MULTIPLE SCLEROSIS
     Route: 048
     Dates: start: 20150305, end: 20150428

REACTIONS (2)
  - Mental disorder [Not Recovered/Not Resolved]
  - Anxiety [Not Recovered/Not Resolved]

NARRATIVE: CASE EVENT DATE: 20150430
